FAERS Safety Report 9492893 (Version 2)
Quarter: 2013Q3

REPORT INFORMATION
  Report Type: Spontaneous
  Country: CH (occurrence: CH)
  Receive Date: 20130901
  Receipt Date: 20130901
  Transmission Date: 20140515
  Serious: Yes (Other)
  Sender: FDA-Public Use
  Company Number: CH-PFIZER INC-2013190564

PATIENT
  Age: 58 Year
  Sex: Female

DRUGS (4)
  1. XANAX [Suspect]
     Indication: DEPRESSION
     Dosage: 0.5 MG, UNK
     Dates: start: 2011
  2. XANAX [Suspect]
     Indication: GUILLAIN-BARRE SYNDROME
     Dosage: 1 MG, UNK
  3. XANAX [Suspect]
     Dosage: 0.5 MG, UNK
  4. XANAX [Suspect]
     Dosage: 0.25 MG, UNK
     Dates: end: 201306

REACTIONS (8)
  - Withdrawal syndrome [Unknown]
  - Hypertension [Unknown]
  - Restlessness [Unknown]
  - Tremor [Unknown]
  - Myalgia [Unknown]
  - Tension [Unknown]
  - Feeling cold [Unknown]
  - Off label use [Recovered/Resolved]
